FAERS Safety Report 20710549 (Version 1)
Quarter: 2022Q2

REPORT INFORMATION
  Report Type: Report from Study
  Country: US (occurrence: US)
  Receive Date: 20220414
  Receipt Date: 20220414
  Transmission Date: 20220721
  Serious: Yes (Other)
  Sender: FDA-Public Use
  Company Number: US-GLAXOSMITHKLINE-US2022062454

PATIENT
  Sex: Female

DRUGS (1)
  1. NIRAPARIB [Suspect]
     Active Substance: NIRAPARIB
     Indication: Genital neoplasm malignant female
     Dosage: 200 MG, QD

REACTIONS (4)
  - Intestinal obstruction [Recovering/Resolving]
  - Sleep disorder [Recovering/Resolving]
  - Muscle spasms [Not Recovered/Not Resolved]
  - Retching [Unknown]
